FAERS Safety Report 25120482 (Version 1)
Quarter: 2025Q1

REPORT INFORMATION
  Report Type: Spontaneous
  Country: GB (occurrence: GB)
  Receive Date: 20250325
  Receipt Date: 20250325
  Transmission Date: 20250409
  Serious: Yes (Other)
  Sender: GILEAD
  Company Number: None

PATIENT
  Sex: Female

DRUGS (2)
  1. EMTRIVA [Suspect]
     Active Substance: EMTRICITABINE
     Indication: Product used for unknown indication
     Dosage: 1 DOSAGE FORM/T
     Route: 065
  2. ISENTRESS [Concomitant]
     Active Substance: RALTEGRAVIR POTASSIUM
     Route: 065

REACTIONS (1)
  - Weight increased [Unknown]
